FAERS Safety Report 5266944-6 (Version None)
Quarter: 2007Q1

REPORT INFORMATION
  Report Type: 
  Country: None (occurrence: None)
  Receive Date: 20070312
  Receipt Date: 20060222
  Transmission Date: 20070707
  Serious: Yes (Hospitalization)
  Sender: FDA-Public Use
  Company Number: 4051

PATIENT
  Sex: Male

DRUGS (1)
  1. AMNESTEEM [Suspect]
     Dates: start: 20030101, end: 20030901

REACTIONS (5)
  - ANAEMIA [None]
  - ANHEDONIA [None]
  - ANXIETY [None]
  - COLITIS ULCERATIVE [None]
  - CROHN'S DISEASE [None]
